FAERS Safety Report 9312672 (Version 1)
Quarter: 2013Q2

REPORT INFORMATION
  Report Type: Spontaneous
  Country: FR (occurrence: FR)
  Receive Date: 20130528
  Receipt Date: 20130528
  Transmission Date: 20140414
  Serious: Yes (Life-Threatening, Other)
  Sender: FDA-Public Use
  Company Number: FR-ASTRAZENECA-2013SE35731

PATIENT
  Age: 9482 Day
  Sex: Female

DRUGS (7)
  1. DIPRIVAN [Suspect]
     Indication: INDUCTION OF ANAESTHESIA
     Route: 042
     Dates: start: 20130429, end: 20130429
  2. ESMERON [Suspect]
     Indication: INDUCTION OF ANAESTHESIA
     Route: 042
     Dates: start: 20130429, end: 20130429
  3. PERFALGAN [Suspect]
     Indication: INDUCTION OF ANAESTHESIA
     Route: 042
     Dates: start: 20130429
  4. MIDAZOLAM [Concomitant]
     Indication: INDUCTION OF ANAESTHESIA
     Route: 042
     Dates: start: 20130429, end: 20130429
  5. KETAMINE [Concomitant]
     Indication: INDUCTION OF ANAESTHESIA
     Route: 042
     Dates: start: 20130429, end: 20130429
  6. SUFENTA [Concomitant]
     Indication: INDUCTION OF ANAESTHESIA
     Route: 042
     Dates: start: 20130429, end: 20130429
  7. ATARAX [Concomitant]

REACTIONS (2)
  - Mendelson^s syndrome [Unknown]
  - Anaphylactic shock [Recovered/Resolved]
